FAERS Safety Report 9331101 (Version 1)
Quarter: 2013Q2

REPORT INFORMATION
  Report Type: Spontaneous
  Country: TR (occurrence: None)
  Receive Date: 20130531
  Receipt Date: 20130531
  Transmission Date: 20140414
  Serious: Yes (Hospitalization, Other)
  Sender: FDA-Public Use
  Company Number: 2013P1006257

PATIENT
  Age: 55 Year
  Sex: Male
  Weight: 77 kg

DRUGS (1)
  1. BUPROPION [Suspect]
     Indication: SMOKING CESSATION THERAPY
     Route: 048

REACTIONS (14)
  - Diarrhoea [None]
  - Depression [None]
  - Apathy [None]
  - Abnormal behaviour [None]
  - Decreased appetite [None]
  - Malaise [None]
  - Renal failure acute [None]
  - Confusional state [None]
  - Disorientation [None]
  - Thrombotic thrombocytopenic purpura [None]
  - Grand mal convulsion [None]
  - Anxiety [None]
  - Pneumonia [None]
  - Toxicity to various agents [None]
